FAERS Safety Report 6974968-3 (Version None)
Quarter: 2010Q3

REPORT INFORMATION
  Report Type: 
  Country: None (occurrence: None)
  Receive Date: 20100909
  Receipt Date: 20090210
  Transmission Date: 20110219
  Serious: No
  Sender: FDA-Public Use
  Company Number: US-WYE-H07669409

PATIENT
  Age: 46 Year
  Sex: Female
  Weight: 104.42 kg

DRUGS (4)
  1. PRISTIQ [Suspect]
     Indication: DEPRESSION
     Route: 048
     Dates: start: 20081217
  2. PRISTIQ [Suspect]
     Indication: ANXIETY
  3. MULTI-VITAMINS [Concomitant]
  4. ATIVAN [Concomitant]

REACTIONS (3)
  - APATHY [None]
  - CRYING [None]
  - EMOTIONAL DISORDER [None]
